FAERS Safety Report 17702531 (Version 1)
Quarter: 2020Q2

REPORT INFORMATION
  Report Type: Spontaneous
  Country: DE (occurrence: DE)
  Receive Date: 20200423
  Receipt Date: 20200423
  Transmission Date: 20200714
  Serious: Yes (Life-Threatening, Hospitalization)
  Sender: FDA-Public Use
  Company Number: DE-009507513-2004DEU006026

PATIENT
  Age: 83 Year
  Sex: Male

DRUGS (14)
  1. XELEVIA [Suspect]
     Active Substance: SITAGLIPTIN PHOSPHATE
     Dosage: 100 MG, 1-0-0-0, TABLETS
  2. VALSARTAN. [Concomitant]
     Active Substance: VALSARTAN
     Dosage: 80 MG, 1-0-1-0, TABLETS
  3. PANTOPRAZOLE [Concomitant]
     Active Substance: PANTOPRAZOLE
     Dosage: 40 MG, 0-0-1-0, TABLETS
  4. PROSTAGUTT FORTE [Concomitant]
     Active Substance: HERBALS
     Dosage: NK MG, 1-0-1-0, CAPSULES
  5. URIVESC [Concomitant]
     Active Substance: TROSPIUM CHLORIDE
     Dosage: 60 MG, 1-0-0-0, CAPSULE
  6. ATORVASTATIN [Concomitant]
     Active Substance: ATORVASTATIN
     Dosage: 20 MG, 1-0-0-0, TABLETS
  7. RIVASTIGMINE. [Concomitant]
     Active Substance: RIVASTIGMINE
     Dosage: 4.6 MG, 1-0-0-0, PATCHES TRANSDERMAL
  8. FINASTERIDE. [Concomitant]
     Active Substance: FINASTERIDE
     Dosage: 5 MG, 1-0-0-0, TABLETS
  9. VITAMIN D (UNSPECIFIED) [Concomitant]
     Active Substance: VITAMIN D NOS
     Dosage: 1000 IE, 1-0-0-0, TABLETS
  10. ELIQUIS [Concomitant]
     Active Substance: APIXABAN
     Dosage: 5 MG, 1-0-1-0, TABLET
  11. ACTRAPHANE [Suspect]
     Active Substance: INSULIN HUMAN
     Dosage: 30|70 MG, 8-0-0-0
  12. TORSEMIDE. [Concomitant]
     Active Substance: TORSEMIDE
     Dosage: 5 MG, 1-0-0-0, TABLET
  13. METOPROLOL. [Concomitant]
     Active Substance: METOPROLOL
     Dosage: 47.5 MG, 1-0-1-0, TABLET
  14. RISPERIDONE. [Concomitant]
     Active Substance: RISPERIDONE
     Dosage: 0.25 MG, 0-0-1-0, TABLETS

REACTIONS (3)
  - Hypoglycaemia [Unknown]
  - Somnolence [Unknown]
  - Product prescribing error [Unknown]
